FAERS Safety Report 9220321 (Version 1)
Quarter: 2013Q2

REPORT INFORMATION
  Report Type: Spontaneous
  Country: US (occurrence: US)
  Receive Date: 20130409
  Receipt Date: 20130409
  Transmission Date: 20140414
  Serious: Yes (Other)
  Sender: FDA-Public Use
  Company Number: PHHY2013US033755

PATIENT
  Age: 86 Year
  Sex: Male

DRUGS (1)
  1. ACETYLSALICYLIC ACID [Suspect]
     Indication: HEADACHE
     Dosage: 2 DF
     Route: 048
     Dates: start: 1973

REACTIONS (6)
  - Haemorrhoids [Not Recovered/Not Resolved]
  - Blood disorder [Unknown]
  - Diabetes mellitus [Not Recovered/Not Resolved]
  - Migraine [Not Recovered/Not Resolved]
  - Haemorrhoidal haemorrhage [Not Recovered/Not Resolved]
  - Incorrect drug administration duration [Unknown]
